FAERS Safety Report 16892851 (Version 1)
Quarter: 2019Q4

REPORT INFORMATION
  Report Type: Spontaneous
  Country: US (occurrence: US)
  Receive Date: 20191007
  Receipt Date: 20191007
  Transmission Date: 20200122
  Serious: No
  Sender: FDA-Public Use
  Company Number: US-009507513-1909USA012064

PATIENT
  Sex: Female
  Weight: 146.94 kg

DRUGS (1)
  1. NEXPLANON [Suspect]
     Active Substance: ETONOGESTREL
     Dosage: 1 ROD EVERY 3 YEARS, 68 MILLIGRAM, ARM
     Route: 059
     Dates: start: 2013

REACTIONS (5)
  - Incorrect product administration duration [Unknown]
  - Complication of device removal [Not Recovered/Not Resolved]
  - No adverse event [Unknown]
  - Complication associated with device [Not Recovered/Not Resolved]
  - Complication associated with device [Recovered/Resolved]

NARRATIVE: CASE EVENT DATE: 2016
